FAERS Safety Report 14930260 (Version 21)
Quarter: 2020Q1

REPORT INFORMATION
  Report Type: Report from Study
  Country: US (occurrence: US)
  Receive Date: 20180523
  Receipt Date: 20200103
  Transmission Date: 20200409
  Serious: Yes (Other)
  Sender: FDA-Public Use
  Company Number: US-MALLINCKRODT-T201801101

PATIENT
  Age: 50 Year
  Sex: Female

DRUGS (9)
  1. REPOSITORY CORTICOTROPIN INJECTION [Suspect]
     Active Substance: CORTICOTROPIN
     Indication: NEPHROTIC SYNDROME
     Dosage: 80 UNITS/1 ML, (MONDAY, WEDNESDAY, FRIDAY)
     Route: 058
     Dates: start: 2018, end: 2018
  2. REPOSITORY CORTICOTROPIN INJECTION [Suspect]
     Active Substance: CORTICOTROPIN
     Dosage: 80 UNITS/1 ML, 2 TIMES PER WEEK (TUESDAY AND FRIDAY)
     Route: 058
     Dates: start: 2018, end: 2018
  3. REPOSITORY CORTICOTROPIN INJECTION [Suspect]
     Active Substance: CORTICOTROPIN
     Dosage: 40 UNITS/0.5 ML, 2 TIMES PER WEEK (TUESDAY AND FRIDAY)
     Route: 058
     Dates: start: 2018, end: 2018
  4. REPOSITORY CORTICOTROPIN INJECTION [Suspect]
     Active Substance: CORTICOTROPIN
     Dosage: 80 UNITS/0.5 ML, 2 TIMES PER WEEK (TUESDAY AND THURSDAY)
     Route: 058
     Dates: start: 201808, end: 2018
  5. REPOSITORY CORTICOTROPIN INJECTION [Suspect]
     Active Substance: CORTICOTROPIN
     Dosage: 80 UNITS/1 ML, (MONDAY, WEDNESDAY, FRIDAY)
     Route: 058
     Dates: start: 2018, end: 20190708
  6. REPOSITORY CORTICOTROPIN INJECTION [Suspect]
     Active Substance: CORTICOTROPIN
     Dosage: 80 UNITS/1 ML, (MONDAY, WEDNESDAY, FRIDAY)
     Route: 058
     Dates: start: 20190726, end: 20191129
  7. PREDNISONE. [Concomitant]
     Active Substance: PREDNISONE
     Indication: PRODUCT USED FOR UNKNOWN INDICATION
     Dosage: 40 MG, TWICE PER WEEK
     Route: 065
  8. REPOSITORY CORTICOTROPIN INJECTION [Suspect]
     Active Substance: CORTICOTROPIN
     Indication: PROTEINURIA
     Dosage: 40 UNITS/0.5 ML, EVERY OTHER DAY FOR 6 WEEKS
     Route: 058
     Dates: start: 20180308, end: 2018
  9. REPOSITORY CORTICOTROPIN INJECTION [Suspect]
     Active Substance: CORTICOTROPIN
     Dosage: 40 UNITS/0.5 ML, 2 TIMES PER WEEK (TUESDAY AND THURSDAY)
     Route: 058
     Dates: start: 2018, end: 2018

REACTIONS (31)
  - Cushingoid [Recovering/Resolving]
  - Blood cholesterol increased [Recovered/Resolved]
  - Gingival swelling [Not Recovered/Not Resolved]
  - Peripheral swelling [Recovering/Resolving]
  - Drug ineffective [Not Recovered/Not Resolved]
  - Chest pain [Not Recovered/Not Resolved]
  - Pruritus [Not Recovered/Not Resolved]
  - Gout [Recovering/Resolving]
  - Decreased appetite [Unknown]
  - Diabetes mellitus [Not Recovered/Not Resolved]
  - Blood pressure decreased [Unknown]
  - Blood pressure increased [Recovered/Resolved]
  - Feeling hot [Unknown]
  - Dysgeusia [Unknown]
  - Muscle spasms [Unknown]
  - Therapy cessation [Not Recovered/Not Resolved]
  - Weight decreased [Not Recovered/Not Resolved]
  - Blood potassium increased [Recovered/Resolved]
  - Nausea [Unknown]
  - Acne [Unknown]
  - Loss of consciousness [Recovered/Resolved]
  - Swelling [Recovering/Resolving]
  - Abdominal distension [Unknown]
  - Gingival pain [Not Recovered/Not Resolved]
  - Palpitations [Not Recovered/Not Resolved]
  - Anaemia [Not Recovered/Not Resolved]
  - Fluid retention [Recovering/Resolving]
  - Blood iron decreased [Unknown]
  - Rash [Unknown]
  - Weight increased [Unknown]
  - Underdose [Not Recovered/Not Resolved]

NARRATIVE: CASE EVENT DATE: 2018
